FAERS Safety Report 6996448-1 (Version None)
Quarter: 2010Q3

REPORT INFORMATION
  Report Type: 
  Country: None (occurrence: None)
  Receive Date: 20100918
  Receipt Date: 20090225
  Transmission Date: 20110219
  Serious: No
  Sender: FDA-Public Use
  Company Number: US-WYE-H08367309

PATIENT
  Sex: Female

DRUGS (5)
  1. EFFEXOR XR [Suspect]
     Indication: NEURALGIA
     Dosage: UNKNOWN
     Dates: start: 20081101
  2. EFFEXOR XR [Suspect]
     Dosage: ^TITRATED UP^
     Route: 048
     Dates: start: 20080101, end: 20080101
  3. EFFEXOR XR [Suspect]
     Route: 048
     Dates: start: 20080101, end: 20090101
  4. EFFEXOR XR [Suspect]
     Dosage: TAPERING OFF
     Route: 048
     Dates: start: 20090101, end: 20090217
  5. EFFEXOR XR [Suspect]
     Route: 048
     Dates: start: 20090218

REACTIONS (5)
  - ARTHRALGIA [None]
  - DRUG WITHDRAWAL SYNDROME [None]
  - FATIGUE [None]
  - MUSCLE TWITCHING [None]
  - NIGHT SWEATS [None]
